FAERS Safety Report 15825949 (Version 1)
Quarter: 2018Q4

REPORT INFORMATION
  Report Type: Spontaneous
  Country: US (occurrence: US)
  Receive Date: 20181217
  Receipt Date: 20181217
  Transmission Date: 20190205
  Serious: Yes (Hospitalization)
  Sender: FDA-Public Use
  Company Number: None

PATIENT
  Age: 55 Year
  Sex: Male
  Weight: 100.9 kg

DRUGS (4)
  1. ETOPOSIDE (VP-16) [Suspect]
     Active Substance: ETOPOSIDE
     Dates: end: 20181130
  2. CYTARABINE. [Suspect]
     Active Substance: CYTARABINE
     Dates: end: 20181130
  3. METHOTREXATE. [Suspect]
     Active Substance: METHOTREXATE
     Dates: end: 20181126
  4. ONCASPAR [Suspect]
     Active Substance: PEGASPARGASE
     Dates: end: 20181130

REACTIONS (7)
  - Oropharyngeal pain [None]
  - Abdominal pain [None]
  - Diarrhoea [None]
  - Nausea [None]
  - Febrile neutropenia [None]
  - Chills [None]
  - Headache [None]

NARRATIVE: CASE EVENT DATE: 20181214
